FAERS Safety Report 21663819 (Version 2)
Quarter: 2022Q4

REPORT INFORMATION
  Report Type: Spontaneous
  Country: BE (occurrence: BE)
  Receive Date: 20221130
  Receipt Date: 20221202
  Transmission Date: 20230113
  Serious: Yes (Other)
  Sender: FDA-Public Use
  Company Number: None

PATIENT

DRUGS (1)
  1. NICORETTE [Suspect]
     Active Substance: NICOTINE
     Indication: Ex-tobacco user
     Dosage: 1 DF (1 CHEWING GUM EVERY TIME YOU FEEL LIKE A CIGARETTE)
     Route: 048
     Dates: start: 20210826, end: 20220330

REACTIONS (2)
  - Tooth injury [Recovering/Resolving]
  - Tooth loss [Recovering/Resolving]

NARRATIVE: CASE EVENT DATE: 20211027
